FAERS Safety Report 14330548 (Version 6)
Quarter: 2025Q4

REPORT INFORMATION
  Report Type: Report from Study
  Country: CA (occurrence: CA)
  Receive Date: 20171227
  Receipt Date: 20251222
  Transmission Date: 20260118
  Serious: Yes (Other)
  Sender: ROCHE
  Company Number: CA-ROCHE-2043696

PATIENT
  Age: 20 Year
  Sex: Female
  Weight: 92 kg

DRUGS (9)
  1. ACTEMRA [Suspect]
     Active Substance: TOCILIZUMAB
     Indication: Juvenile idiopathic arthritis
     Route: 042
     Dates: start: 20160420, end: 20180228
  2. ACTEMRA [Suspect]
     Active Substance: TOCILIZUMAB
     Route: 042
     Dates: start: 2025
  3. ACTEMRA ACTPEN [Suspect]
     Active Substance: TOCILIZUMAB
     Indication: Juvenile idiopathic arthritis
     Route: 058
  4. ACTEMRA ACTPEN [Suspect]
     Active Substance: TOCILIZUMAB
     Route: 058
  5. ARAVA [Concomitant]
     Active Substance: LEFLUNOMIDE
  6. VOLTAREN [Concomitant]
     Active Substance: DICLOFENAC SODIUM
  7. LOSEC [Concomitant]
     Active Substance: OMEPRAZOLE
  8. DIAMOX SEQUELS [Concomitant]
     Active Substance: ACETAZOLAMIDE
     Dosage: PATIENT WILL BE TAKING WITH ACTEMRA
  9. LYRICA [Concomitant]
     Active Substance: PREGABALIN
     Indication: Headache

REACTIONS (8)
  - Optic disc oedema [Unknown]
  - Arthritis [Unknown]
  - Weight increased [Unknown]
  - Therapeutic response decreased [Recovering/Resolving]
  - Joint swelling [Recovered/Resolved]
  - Arthropathy [Unknown]
  - Inappropriate schedule of product administration [Unknown]
  - Weight decreased [Unknown]

NARRATIVE: CASE EVENT DATE: 20160618
